FAERS Safety Report 8237042-4 (Version None)
Quarter: 2012Q1

REPORT INFORMATION
  Report Type: 
  Country: None (occurrence: None)
  Receive Date: 20120327
  Receipt Date: 20120323
  Transmission Date: 20120608
  Serious: Yes (Death)
  Sender: FDA-Public Use
  Company Number: PHHY2012IT025273

PATIENT
  Sex: Female

DRUGS (3)
  1. KETOROLAC TROMETHAMINE [Concomitant]
     Indication: BACK PAIN
     Dosage: 10 MG, UNK
     Route: 030
     Dates: start: 20120317
  2. VOLTAREN [Suspect]
     Indication: BACK PAIN
     Dosage: 1 DF, ONCE/SINGLE
     Route: 030
     Dates: start: 20120317
  3. MUSCORIL [Concomitant]
     Dosage: 1 DF, BID

REACTIONS (6)
  - FACE OEDEMA [None]
  - ANAPHYLACTIC SHOCK [None]
  - LOSS OF CONSCIOUSNESS [None]
  - SYNCOPE [None]
  - CARDIO-RESPIRATORY ARREST [None]
  - LOCALISED OEDEMA [None]
